FAERS Safety Report 18463088 (Version 1)
Quarter: 2020Q4

REPORT INFORMATION
  Report Type: Spontaneous
  Country: GB (occurrence: GB)
  Receive Date: 20201104
  Receipt Date: 20201104
  Transmission Date: 20210114
  Serious: Yes (Life-Threatening, Disabling, Other)
  Sender: FDA-Public Use
  Company Number: GB-TEVA-2020-GB-1844548

PATIENT
  Age: 49 Year
  Sex: Female

DRUGS (3)
  1. NITROFURANTOIN. [Suspect]
     Active Substance: NITROFURANTOIN
     Indication: URINARY TRACT INFECTION
     Dosage: 100 MILLIGRAM DAILY; EVERY NIGHT, UNIT DOSE 100 MG
     Route: 048
     Dates: start: 2016, end: 202009
  2. VENTOLIN [Concomitant]
     Active Substance: ALBUTEROL SULFATE
  3. PARACETAMOL [Concomitant]
     Active Substance: ACETAMINOPHEN

REACTIONS (23)
  - Head discomfort [Unknown]
  - Pallor [Unknown]
  - Visual impairment [Unknown]
  - Hypoacusis [Unknown]
  - Renal atrophy [Unknown]
  - Headache [Unknown]
  - Neuropathy peripheral [Unknown]
  - Dyspnoea [Unknown]
  - Chest pain [Unknown]
  - Cyanosis [Unknown]
  - Swelling [Unknown]
  - Back pain [Unknown]
  - Mental impairment [Unknown]
  - Diarrhoea [Unknown]
  - Toxicity to various agents [Not Recovered/Not Resolved]
  - Somnolence [Unknown]
  - Nausea [Unknown]
  - Asthenia [Unknown]
  - Abdominal pain [Unknown]
  - Fatigue [Unknown]
  - Hyperhidrosis [Unknown]
  - Hypoaesthesia [Unknown]
  - Renal failure [Unknown]

NARRATIVE: CASE EVENT DATE: 2017
